FAERS Safety Report 15042278 (Version 3)
Quarter: 2018Q3

REPORT INFORMATION
  Report Type: Report from Study
  Country: CA (occurrence: CA)
  Receive Date: 20180621
  Receipt Date: 20180803
  Transmission Date: 20181010
  Serious: Yes (Hospitalization, Other)
  Sender: FDA-Public Use
  Company Number: CA-BRISTOL-MYERS SQUIBB COMPANY-BMS-2018-055352

PATIENT
  Sex: Female

DRUGS (1)
  1. ABATACEPT [Suspect]
     Active Substance: ABATACEPT
     Indication: RHEUMATOID ARTHRITIS
     Dosage: 500 MG, Q4WK
     Route: 042
     Dates: start: 20131219

REACTIONS (7)
  - Syncope [Unknown]
  - Pneumonia [Unknown]
  - Confabulation [Unknown]
  - Confusional state [Unknown]
  - Pain [Unknown]
  - Fall [Unknown]
  - Arthritis [Unknown]
